FAERS Safety Report 10036318 (Version 1)
Quarter: 2014Q1

REPORT INFORMATION
  Report Type: Spontaneous
  Country: CA (occurrence: CA)
  Receive Date: 20140325
  Receipt Date: 20140325
  Transmission Date: 20141002
  Serious: Yes (Other)
  Sender: FDA-Public Use
  Company Number: CA-ABBVIE-14K-028-1215188-00

PATIENT
  Sex: Male

DRUGS (1)
  1. LUPRON DEPOT [Suspect]
     Indication: PRODUCT USED FOR UNKNOWN INDICATION
     Dosage: SUSPENSION
     Dates: end: 201212

REACTIONS (9)
  - Lung operation [Recovered/Resolved]
  - Musculoskeletal pain [Recovered/Resolved]
  - Neck pain [Recovered/Resolved]
  - Arthralgia [Recovered/Resolved]
  - Hot flush [Recovered/Resolved]
  - Muscle spasms [Recovered/Resolved]
  - Breast pain [Recovered/Resolved]
  - Breast swelling [Recovered/Resolved]
  - Local swelling [Unknown]
